FAERS Safety Report 10840914 (Version 3)
Quarter: 2016Q1

REPORT INFORMATION
  Report Type: Spontaneous
  Country: US (occurrence: US)
  Receive Date: 20150220
  Receipt Date: 20160201
  Transmission Date: 20160525
  Serious: No
  Sender: FDA-Public Use
  Company Number: US-ABBVIE-14P-163-1249013-00

PATIENT

DRUGS (3)
  1. SULFASALAZINE. [Concomitant]
     Active Substance: SULFASALAZINE
     Indication: PSORIATIC ARTHROPATHY
  2. HUMIRA [Suspect]
     Active Substance: ADALIMUMAB
     Indication: PSORIASIS
     Route: 065
  3. HUMIRA [Suspect]
     Active Substance: ADALIMUMAB
     Indication: PSORIATIC ARTHROPATHY

REACTIONS (7)
  - Osteoarthritis [Unknown]
  - Stress [Unknown]
  - Psoriatic arthropathy [Recovered/Resolved]
  - Psoriasis [Recovered/Resolved]
  - Mobility decreased [Unknown]
  - Drug ineffective [Unknown]
  - Arthralgia [Unknown]
